FAERS Safety Report 7960341-8 (Version None)
Quarter: 2011Q4

REPORT INFORMATION
  Report Type: 
  Country: None (occurrence: None)
  Receive Date: 20111206
  Receipt Date: 20111206
  Transmission Date: 20120403
  Serious: Yes (Death, Hospitalization, Disabling)
  Sender: FDA-Public Use
  Company Number: PHHO2010TW13149

PATIENT
  Sex: Male
  Weight: 60 kg

DRUGS (9)
  1. TAMSULOSIN HCL [Concomitant]
     Indication: BENIGN PROSTATIC HYPERPLASIA
     Dosage: UNK
  2. ISOSORBIDE MONONITRATE [Concomitant]
     Indication: ATRIAL FIBRILLATION
  3. FEXOFENADINE [Concomitant]
  4. AFINITOR [Suspect]
     Dosage: 10 MG, QD
     Route: 048
     Dates: start: 20100903, end: 20101023
  5. PERINDOPRIL [Concomitant]
     Indication: HYPERTENSION
     Dosage: UNK
  6. AFINITOR [Suspect]
     Indication: METASTATIC GASTRIC CANCER
     Dosage: NO TREATMENT
     Dates: end: 20100902
  7. SIMETHICONE [Concomitant]
     Indication: PROPHYLAXIS
     Dosage: UNK
  8. CARBOCISTEINE [Concomitant]
     Indication: COUGH
  9. ACERDIL [Concomitant]

REACTIONS (10)
  - RENAL FAILURE ACUTE [None]
  - HYPOTENSION [None]
  - ACINETOBACTER INFECTION [None]
  - ASTHENIA [None]
  - SEPTIC SHOCK [None]
  - EPISTAXIS [None]
  - PULMONARY OEDEMA [None]
  - THROMBOCYTOPENIA [None]
  - PYREXIA [None]
  - CARDIAC ARREST [None]
